FAERS Safety Report 18077689 (Version 1)
Quarter: 2020Q3

REPORT INFORMATION
  Report Type: Spontaneous
  Country: US (occurrence: US)
  Receive Date: 20200727
  Receipt Date: 20200727
  Transmission Date: 20201103
  Serious: No
  Sender: FDA-Public Use
  Company Number: None

PATIENT
  Sex: Male

DRUGS (1)
  1. AMBRISENTAN 5MG [Suspect]
     Active Substance: AMBRISENTAN
     Route: 048

REACTIONS (4)
  - Pain [None]
  - Peripheral swelling [None]
  - Pain in extremity [None]
  - Myalgia [None]
